FAERS Safety Report 5431687-2 (Version None)
Quarter: 2007Q3

REPORT INFORMATION
  Report Type: 
  Country: None (occurrence: None)
  Receive Date: 20070731
  Receipt Date: 20070607
  Transmission Date: 20080115
  Serious: No
  Sender: FDA-Public Use
  Company Number: US200706002486

PATIENT
  Age: 79 Year
  Sex: Male

DRUGS (2)
  1. BYETTA [Suspect]
     Dosage: SUBCUTANEOUS
     Route: 058
  2. EXENATIDE UNK STRENGTH  PEN, DISPOSABLE DIVICE (EXENATIDE PEN (UNKNOWN [Concomitant]

REACTIONS (1)
  - INJECTION SITE IRRITATION [None]
